FAERS Safety Report 9961225 (Version 1)
Quarter: 2014Q1

REPORT INFORMATION
  Report Type: Spontaneous
  Country: US (occurrence: US)
  Receive Date: 20140305
  Receipt Date: 20140305
  Transmission Date: 20141002
  Serious: Yes (Hospitalization)
  Sender: FDA-Public Use
  Company Number: US-SA-2014SA027845

PATIENT
  Sex: Female

DRUGS (1)
  1. LANTUS [Suspect]
     Route: 051

REACTIONS (2)
  - Arthropathy [Unknown]
  - Arthralgia [Unknown]
